FAERS Safety Report 16907628 (Version 1)
Quarter: 2019Q4

REPORT INFORMATION
  Report Type: Spontaneous
  Country: US (occurrence: US)
  Receive Date: 20190819
  Receipt Date: 20190819
  Transmission Date: 20200122
  Serious: No
  Sender: FDA-Public Use
  Company Number: None

PATIENT
  Age: 61 Year
  Sex: Female

DRUGS (1)
  1. CAPECITABINE 500 MG NOVADOZ [Suspect]
     Active Substance: CAPECITABINE
     Indication: BONE CANCER
     Dosage: ON HOLD
     Route: 048
     Dates: start: 20180904

REACTIONS (2)
  - Dry skin [None]
  - Pain in extremity [None]

NARRATIVE: CASE EVENT DATE: 201907
